FAERS Safety Report 8232259 (Version 2)
Quarter: 2013Q2

REPORT INFORMATION
  Report Type: Spontaneous
  Country: US (occurrence: US)
  Receive Date: 20111107
  Receipt Date: 20130426
  Transmission Date: 20140414
  Serious: Yes (Hospitalization, Other)
  Sender: FDA-Public Use
  Company Number: US-PFIZER INC-2011268445

PATIENT
  Age: 14 Year
  Sex: Female

DRUGS (14)
  1. DILANTIN [Suspect]
     Indication: CONVULSION
     Dosage: 1000 MG, UNK
     Route: 042
     Dates: start: 20080915, end: 20080915
  2. DILANTIN [Suspect]
     Dosage: 300 MG, UNK
     Route: 042
     Dates: start: 20080917, end: 20080917
  3. DILANTIN [Suspect]
     Indication: CONVULSION
     Dosage: 200 MG, 2X/DAY
     Route: 048
     Dates: start: 20080916, end: 20080917
  4. DILANTIN [Suspect]
     Indication: CONVULSION
     Dosage: 100 MG, 3X/DAY
     Route: 048
     Dates: start: 20080915, end: 20080916
  5. DILANTIN [Suspect]
     Dosage: 200 MG, 2X/DAY
     Route: 048
     Dates: start: 20080917, end: 20080924
  6. MORPHINE [Concomitant]
     Indication: HEADACHE
     Dosage: 2.5 MG, UNK
     Route: 042
     Dates: start: 20080910, end: 20080910
  7. ZOFRAN [Concomitant]
     Indication: NAUSEA
     Dosage: 4 MG, UNK
     Route: 042
     Dates: start: 20080910, end: 20080910
  8. PEPCID [Concomitant]
     Dosage: 20 MG, 2X/DAY
     Route: 048
     Dates: start: 20080915, end: 20080917
  9. TOPAMAX [Concomitant]
     Dosage: 25 MG, 1X/DAY
     Route: 048
     Dates: start: 20080915, end: 20080916
  10. TOPAMAX [Concomitant]
     Dosage: 50 MG, 1X/DAY
     Route: 048
     Dates: start: 20080916, end: 20080917
  11. ATIVAN [Concomitant]
     Dosage: 1 MG, UNK
     Route: 042
     Dates: start: 20080915, end: 20080916
  12. CEREBYX [Concomitant]
     Dosage: 300 MG, UNK
     Route: 042
     Dates: start: 20080915, end: 20080916
  13. DARVOCET-N [Concomitant]
     Indication: PAIN
     Dosage: ONE TABLET (100MG/650MG)
     Route: 048
     Dates: start: 20080917, end: 20080917
  14. ULTRAM [Concomitant]
     Indication: PAIN
     Dosage: 50 MG, EVERY 4 HRS
     Route: 048
     Dates: start: 20080915, end: 20080917

REACTIONS (1)
  - Stevens-Johnson syndrome [Recovering/Resolving]
